FAERS Safety Report 18572190 (Version 1)
Quarter: 2020Q4

REPORT INFORMATION
  Report Type: Report from Study
  Country: FR (occurrence: FR)
  Receive Date: 20201203
  Receipt Date: 20201203
  Transmission Date: 20210114
  Serious: Yes (Hospitalization, Other)
  Sender: FDA-Public Use
  Company Number: FR-EMD SERONO-9200576

PATIENT
  Age: 13 Year
  Sex: Male

DRUGS (1)
  1. SAIZEN [Suspect]
     Active Substance: SOMATROPIN
     Indication: GROWTH HORMONE DEFICIENCY

REACTIONS (6)
  - Treatment noncompliance [Unknown]
  - Seizure [Unknown]
  - Anxiety [Unknown]
  - Device malfunction [Unknown]
  - Blood thyroid stimulating hormone abnormal [Unknown]
  - Malaise [Unknown]

NARRATIVE: CASE EVENT DATE: 202011
